FAERS Safety Report 6371703-7 (Version None)
Quarter: 2009Q3

REPORT INFORMATION
  Report Type: 
  Country: None (occurrence: None)
  Receive Date: 20090923
  Receipt Date: 20080509
  Transmission Date: 20100115
  Serious: No
  Sender: FDA-Public Use
  Company Number: US-ASTRAZENECA-2008UW04668

PATIENT
  Age: 17029 Day
  Sex: Female

DRUGS (17)
  1. SEROQUEL [Suspect]
     Indication: BIPOLAR DISORDER
     Route: 048
     Dates: start: 20010415, end: 20060401
  2. SEROQUEL [Suspect]
     Indication: DEPRESSION
     Route: 048
     Dates: start: 20010415, end: 20060401
  3. SEROQUEL [Suspect]
     Dosage: 100-200 MG
     Route: 048
  4. SEROQUEL [Suspect]
     Dosage: 100-200 MG
     Route: 048
  5. HYDROCODONE [Concomitant]
  6. CARISOPRODOL [Concomitant]
  7. ZOLOFT [Concomitant]
  8. FLONASE [Concomitant]
  9. PREMARIN [Concomitant]
  10. VICODIN [Concomitant]
  11. ESKALITH [Concomitant]
  12. DIAZEPAM [Concomitant]
  13. FEMHRT [Concomitant]
  14. PREVACID [Concomitant]
  15. ALLEGRA [Concomitant]
     Route: 048
  16. ORUVAIL [Concomitant]
  17. MOTRIN [Concomitant]
     Route: 048

REACTIONS (10)
  - ABDOMINAL PAIN [None]
  - AFFECTIVE DISORDER [None]
  - COUGH [None]
  - DIABETES MELLITUS [None]
  - DYSPNOEA [None]
  - NASOPHARYNGITIS [None]
  - PAIN IN EXTREMITY [None]
  - PARANASAL SINUS HYPERSECRETION [None]
  - RHINITIS ALLERGIC [None]
  - UPPER RESPIRATORY TRACT INFECTION [None]
